FAERS Safety Report 19406102 (Version 1)
Quarter: 2021Q2

REPORT INFORMATION
  Report Type: Spontaneous
  Country: GB (occurrence: GB)
  Receive Date: 20210611
  Receipt Date: 20210611
  Transmission Date: 20210717
  Serious: Yes (Other)
  Sender: FDA-Public Use
  Company Number: GB-PFIZER INC-2021650393

PATIENT
  Age: 56 Year
  Sex: Female

DRUGS (11)
  1. BLEOMYCIN [Suspect]
     Active Substance: BLEOMYCIN SULFATE
     Indication: ANGIOCENTRIC LYMPHOMA
     Dosage: UNK
  2. CYCLOPHOSPHAMIDE. [Suspect]
     Active Substance: CYCLOPHOSPHAMIDE
     Indication: ANGIOCENTRIC LYMPHOMA
     Dosage: UNK
  3. PREDNISOLONE. [Concomitant]
     Active Substance: PREDNISOLONE
     Dosage: 10 MG, DAILY
  4. METHOTREXATE SODIUM. [Suspect]
     Active Substance: METHOTREXATE SODIUM
     Indication: ANGIOCENTRIC LYMPHOMA
     Dosage: UNK
  5. PREDNISONE. [Suspect]
     Active Substance: PREDNISONE
     Indication: ANGIOCENTRIC LYMPHOMA
     Dosage: UNK
  6. DAUNORUBICIN [Concomitant]
     Active Substance: DAUNORUBICIN
     Indication: ANGIOCENTRIC LYMPHOMA
     Dosage: 50 MG/M2
     Route: 042
  7. PREDNISOLONE. [Concomitant]
     Active Substance: PREDNISOLONE
     Indication: ANGIOCENTRIC LYMPHOMA
     Dosage: 60 MG/M2, DAILY
  8. VINCRISTINE SULFATE. [Suspect]
     Active Substance: VINCRISTINE SULFATE
     Indication: ANGIOCENTRIC LYMPHOMA
     Dosage: 2 MG, WEEKLY
     Route: 042
  9. DOXORUBICIN [Suspect]
     Active Substance: DOXORUBICIN
     Indication: ANGIOCENTRIC LYMPHOMA
     Dosage: UNK
  10. DDAVP [Concomitant]
     Active Substance: DESMOPRESSIN ACETATE
     Indication: DIABETES INSIPIDUS
     Dosage: 10 PG, 2X/DAY INTRANASAL
  11. PREDNISOLONE. [Concomitant]
     Active Substance: PREDNISOLONE
     Dosage: 40 MG, DAILY

REACTIONS (2)
  - Lower respiratory tract infection [Unknown]
  - Neutropenia [Unknown]
